FAERS Safety Report 12964780 (Version 1)
Quarter: 2016Q4

REPORT INFORMATION
  Report Type: Spontaneous
  Country: SE (occurrence: SE)
  Receive Date: 20161122
  Receipt Date: 20161122
  Transmission Date: 20170207
  Serious: Yes (Hospitalization)
  Sender: FDA-Public Use
  Company Number: SE-PFIZER INC-2016536512

PATIENT
  Age: 23 Year
  Sex: Male

DRUGS (4)
  1. STESOLID [Suspect]
     Active Substance: DIAZEPAM
  2. LEVEMIR [Suspect]
     Active Substance: INSULIN DETEMIR
     Indication: TYPE 1 DIABETES MELLITUS
  3. XANOR [Suspect]
     Active Substance: ALPRAZOLAM
  4. NOVORAPID [Suspect]
     Active Substance: INSULIN ASPART
     Indication: TYPE 1 DIABETES MELLITUS

REACTIONS (3)
  - Toxicity to various agents [Unknown]
  - Agitation [Unknown]
  - Suicide attempt [Unknown]

NARRATIVE: CASE EVENT DATE: 201611
